FAERS Safety Report 13073158 (Version 2)
Quarter: 2017Q1

REPORT INFORMATION
  Report Type: Spontaneous
  Country: IN (occurrence: IN)
  Receive Date: 20161229
  Receipt Date: 20170127
  Transmission Date: 20170428
  Serious: Yes (Life-Threatening, Hospitalization, Other)
  Sender: FDA-Public Use
  Company Number: IN-PFIZER INC-2016601481

PATIENT
  Age: 48 Year
  Sex: Male

DRUGS (4)
  1. VALPROIC ACID. [Interacting]
     Active Substance: VALPROIC ACID
     Indication: MANIA
     Dosage: 500 MG, UNK
  2. VALPROIC ACID. [Interacting]
     Active Substance: VALPROIC ACID
     Dosage: 1500 MG, 1X/DAY AT NIGHT
  3. RISPERIDONE. [Interacting]
     Active Substance: RISPERIDONE
     Indication: AGITATION
     Dosage: 5 MG, UNK
  4. LORAZEPAM. [Suspect]
     Active Substance: LORAZEPAM
     Indication: DETOXIFICATION
     Dosage: 2 MG, 3X/DAY

REACTIONS (2)
  - Drug interaction [Recovered/Resolved]
  - Hyperammonaemic encephalopathy [Recovered/Resolved]
